FAERS Safety Report 21003887 (Version 2)
Quarter: 2022Q3

REPORT INFORMATION
  Report Type: Report from Study
  Country: US (occurrence: None)
  Receive Date: 20220624
  Receipt Date: 20220720
  Transmission Date: 20221026
  Serious: Yes (Hospitalization, Other)
  Sender: FDA-Public Use
  Company Number: US-Eisai Medical Research-EC-2022-117274

PATIENT
  Age: 62 Year
  Sex: Female

DRUGS (1)
  1. LENVIMA [Suspect]
     Active Substance: LENVATINIB
     Indication: Endometrial cancer
     Route: 048
     Dates: start: 20220214, end: 20220601

REACTIONS (3)
  - Cholecystitis acute [Not Recovered/Not Resolved]
  - Cholelithiasis [Unknown]
  - Biliary fistula [Not Recovered/Not Resolved]

NARRATIVE: CASE EVENT DATE: 20220501
